FAERS Safety Report 5255879-0 (Version None)
Quarter: 2007Q1

REPORT INFORMATION
  Report Type: 
  Country: None (occurrence: None)
  Receive Date: 20070301
  Receipt Date: 20070214
  Transmission Date: 20070707
  Serious: Yes (Hospitalization)
  Sender: FDA-Public Use
  Company Number: 8021560

PATIENT
  Age: 40 Year
  Sex: Male
  Weight: 68 kg

DRUGS (3)
  1. KEPPRA [Suspect]
     Indication: CONVULSION PROPHYLAXIS
     Dosage: 1000 MG 2/D PO
     Route: 048
     Dates: start: 20061227, end: 20070108
  2. TROVAFLOXINE [Suspect]
     Indication: MENINGITIS BACTERIAL
     Dosage: 1.6 G 2/D IVI
     Route: 042
     Dates: start: 20061226, end: 20070105
  3. CEFEPIME [Suspect]
     Indication: MENINGITIS BACTERIAL
     Dosage: 2 G 2/D IVI
     Route: 042
     Dates: start: 20061226, end: 20070105

REACTIONS (11)
  - ANAEMIA [None]
  - GASTRIC ULCER [None]
  - HAEMODIALYSIS [None]
  - INFLUENZA [None]
  - NAUSEA [None]
  - PHARYNGEAL OEDEMA [None]
  - RENAL FAILURE [None]
  - STEVENS-JOHNSON SYNDROME [None]
  - STRESS ULCER [None]
  - URINARY TRACT INFECTION [None]
  - VOMITING [None]
